FAERS Safety Report 4915282-7 (Version None)
Quarter: 2006Q1

REPORT INFORMATION
  Report Type: 
  Country: None (occurrence: None)
  Receive Date: 20060216
  Receipt Date: 20060216
  Transmission Date: 20060701
  Serious: Yes (Life-Threatening)
  Sender: FDA-Public Use
  Company Number: None

PATIENT
  Sex: Female
  Weight: 90.2658 kg

DRUGS (13)
  1. ZOMETA [Suspect]
     Indication: BONE LESION
     Dosage: 4 MG Q4WK IV
     Route: 042
     Dates: start: 20040211, end: 20050921
  2. ZOMETA [Suspect]
     Indication: BREAST CANCER
     Dosage: 4 MG Q4WK IV
     Route: 042
     Dates: start: 20040211, end: 20050921
  3. LETROZOLE [Concomitant]
  4. VALIUM [Concomitant]
  5. PREVACID [Concomitant]
  6. CALAN [Concomitant]
  7. URSO [Concomitant]
  8. HYZAAR [Concomitant]
  9. GLUCOVANCE [Concomitant]
  10. ACTOS [Concomitant]
  11. EFFEXOR [Concomitant]
  12. HYDROCODONE BITARTRATE [Concomitant]
  13. ASPIRIN [Concomitant]

REACTIONS (1)
  - OSTEONECROSIS [None]
